FAERS Safety Report 5336463-7 (Version None)
Quarter: 2007Q2

REPORT INFORMATION
  Report Type: 
  Country: None (occurrence: None)
  Receive Date: 20070524
  Receipt Date: 20070514
  Transmission Date: 20071010
  Serious: Yes (Life-Threatening)
  Sender: FDA-Public Use
  Company Number: S07-ESP-02060-01

PATIENT
  Age: 65 Year
  Sex: Female

DRUGS (7)
  1. CITALOPRAM HYDROBROMIDE [Suspect]
     Indication: DEPRESSION
     Dosage: 20 MG QD PO
     Route: 048
  2. SINTROM [Suspect]
     Indication: ARRHYTHMIA
     Dates: start: 19960101, end: 20070101
  3. SINTROM [Suspect]
     Indication: CONDUCTION DISORDER
     Dates: start: 19960101, end: 20070101
  4. PAROXETINE HCL [Suspect]
     Indication: DEPRESSION
     Dosage: 20 MG QD PO
     Route: 048
  5. OMEPRAZOLE [Suspect]
     Indication: PROPHYLAXIS
  6. DIGOXIN [Concomitant]
  7. CALCITONIN-SALMON [Concomitant]

REACTIONS (4)
  - APHASIA [None]
  - COORDINATION ABNORMAL [None]
  - HAEMORRHAGE INTRACRANIAL [None]
  - INTERNATIONAL NORMALISED RATIO INCREASED [None]
